FAERS Safety Report 9883228 (Version 1)
Quarter: 2014Q1

REPORT INFORMATION
  Report Type: Spontaneous
  Country: IN (occurrence: IN)
  Receive Date: 20140209
  Receipt Date: 20140209
  Transmission Date: 20141002
  Serious: Yes (Other)
  Sender: FDA-Public Use
  Company Number: PHHY2014IN015593

PATIENT
  Sex: 0

DRUGS (2)
  1. CICLOSPORIN [Suspect]
     Dosage: UNK
     Route: 064
  2. HEMATINIC [Suspect]
     Route: 064

REACTIONS (2)
  - Small for dates baby [Unknown]
  - Foetal exposure during pregnancy [Unknown]
